FAERS Safety Report 7127899-2 (Version None)
Quarter: 2010Q4

REPORT INFORMATION
  Report Type: 
  Country: None (occurrence: None)
  Receive Date: 20101130
  Receipt Date: 20101119
  Transmission Date: 20110411
  Serious: Yes (Other)
  Sender: FDA-Public Use
  Company Number: US-JNJFOC-20101101198

PATIENT
  Sex: Female
  Weight: 48.99 kg

DRUGS (3)
  1. REMICADE [Suspect]
     Indication: CROHN'S DISEASE
     Dosage: DOSE = 3 VIALS
     Route: 042
  2. PREDNISONE [Concomitant]
     Dosage: WEANING
  3. LOMOTIL [Concomitant]
     Indication: DIARRHOEA

REACTIONS (2)
  - PANNICULITIS [None]
  - WEIGHT INCREASED [None]
